FAERS Safety Report 8433593-8 (Version None)
Quarter: 2012Q2

REPORT INFORMATION
  Report Type: 
  Country: None (occurrence: None)
  Receive Date: 20120613
  Receipt Date: 20120605
  Transmission Date: 20120825
  Serious: Yes (Hospitalization, Other)
  Sender: FDA-Public Use
  Company Number: FR-ABBOTT-12P-056-0943209-00

PATIENT
  Sex: Female

DRUGS (3)
  1. HUMIRA [Suspect]
     Indication: COLITIS ULCERATIVE
  2. PURINETHOL [Suspect]
     Indication: COLITIS ULCERATIVE
     Route: 048
     Dates: end: 20120403
  3. PREDNISONE TAB [Concomitant]
     Indication: COLITIS ULCERATIVE
     Route: 048

REACTIONS (6)
  - FAILED INDUCTION OF LABOUR [None]
  - PROTEINURIA [None]
  - PRE-ECLAMPSIA [None]
  - HYPERTENSION [None]
  - URINARY TRACT INFECTION [None]
  - OEDEMA [None]
